FAERS Safety Report 9767287 (Version 2)
Quarter: 2014Q1

REPORT INFORMATION
  Report Type: Spontaneous
  Country: US (occurrence: US)
  Receive Date: 20131217
  Receipt Date: 20140328
  Transmission Date: 20141002
  Serious: No
  Sender: FDA-Public Use
  Company Number: US-009507513-1312USA006943

PATIENT
  Age: 16 Year
  Sex: Female
  Weight: 68.27 kg

DRUGS (3)
  1. MIRALAX [Suspect]
     Indication: CONSTIPATION
     Dosage: 8.5 G, QD
     Route: 048
     Dates: start: 201302
  2. ZOVIA [Concomitant]
     Indication: HAEMORRHAGE
     Dosage: UNK, UNKNOWN
  3. ZOVIA [Concomitant]
     Indication: MUSCLE SPASMS

REACTIONS (6)
  - Incorrect drug administration duration [Unknown]
  - Drug administered to patient of inappropriate age [Unknown]
  - Underdose [Unknown]
  - Off label use [Unknown]
  - Product taste abnormal [Unknown]
  - Product odour abnormal [Unknown]
